FAERS Safety Report 4564781-9 (Version None)
Quarter: 2005Q1

REPORT INFORMATION
  Report Type: 
  Country: None (occurrence: None)
  Receive Date: 20050128
  Receipt Date: 20041022
  Transmission Date: 20050727
  Serious: Yes (Hospitalization)
  Sender: FDA-Public Use
  Company Number: DE-ABBOTT-04P-062-0278486-01

PATIENT
  Sex: Female
  Weight: 73 kg

DRUGS (7)
  1. HUMIRA [Suspect]
     Indication: RHEUMATOID ARTHRITIS
     Dosage: 40 MG
     Route: 058
     Dates: start: 20031016
  2. CARBAMAZEPINE [Concomitant]
     Indication: ARTHRALGIA
     Dates: start: 19970101
  3. TILIDINE HYDROCHLORIDE [Concomitant]
     Indication: ARTHRALGIA
     Dates: start: 20040901
  4. TETRAZEPAM [Concomitant]
     Indication: ARTHRALGIA
     Dates: start: 19970101
  5. DYAZIDE [Concomitant]
     Indication: OEDEMA
  6. PANTOPRAZOLE SODIUM [Concomitant]
     Indication: GASTRITIS
     Dates: start: 19970101
  7. AZATHIOPRINE [Concomitant]
     Indication: DRUG USE FOR UNKNOWN INDICATION

REACTIONS (1)
  - RHEUMATOID ARTHRITIS [None]
